FAERS Safety Report 7777160-8 (Version None)
Quarter: 2011Q3

REPORT INFORMATION
  Report Type: 
  Country: None (occurrence: None)
  Receive Date: 20110922
  Receipt Date: 20110915
  Transmission Date: 20111222
  Serious: Yes (Other)
  Sender: FDA-Public Use
  Company Number: 2011SP036175

PATIENT
  Age: 40 Year
  Sex: Female

DRUGS (5)
  1. PAXIL [Concomitant]
  2. SILECE [Concomitant]
  3. REMERON [Suspect]
     Indication: DEPRESSION
     Dosage: 15 MG; QD; PO
     Route: 048
     Dates: start: 20110709, end: 20110715
  4. SULPIRIDE [Concomitant]
  5. MEILAX [Concomitant]

REACTIONS (4)
  - WEIGHT INCREASED [None]
  - OEDEMA PERIPHERAL [None]
  - FACE OEDEMA [None]
  - CARDIAC FAILURE ACUTE [None]
